FAERS Safety Report 4603690-3 (Version None)
Quarter: 2005Q1

REPORT INFORMATION
  Report Type: 
  Country: None (occurrence: None)
  Receive Date: 20050310
  Receipt Date: 20050307
  Transmission Date: 20050727
  Serious: Yes (Other)
  Sender: FDA-Public Use
  Company Number: US-JNJFOC-20050203408

PATIENT
  Age: 42 Year
  Sex: Male
  Weight: 130 kg

DRUGS (1)
  1. DURAGESIC-100 [Suspect]
     Route: 049

REACTIONS (2)
  - DRUG ABUSER [None]
  - OVERDOSE [None]
